FAERS Safety Report 17518893 (Version 3)
Quarter: 2020Q4

REPORT INFORMATION
  Report Type: Spontaneous
  Country: US (occurrence: US)
  Receive Date: 20200309
  Receipt Date: 20201124
  Transmission Date: 20210113
  Serious: Yes (Other)
  Sender: FDA-Public Use
  Company Number: US-PFIZER INC-2020101952

PATIENT
  Age: 62 Year
  Sex: Female

DRUGS (4)
  1. DICLOFENAC [Concomitant]
     Active Substance: DICLOFENAC
     Indication: INFLAMMATION
     Dosage: UNK
  2. XELJANZ XR [Suspect]
     Active Substance: TOFACITINIB CITRATE
     Dosage: 11 MG, 1X/DAY
     Route: 048
  3. FOLIC ACID. [Concomitant]
     Active Substance: FOLIC ACID
     Dosage: UNK
  4. XELJANZ XR [Suspect]
     Active Substance: TOFACITINIB CITRATE
     Indication: RHEUMATOID ARTHRITIS
     Dosage: 11 MG, 1X/DAY
     Route: 048
     Dates: start: 201912

REACTIONS (5)
  - Influenza [Unknown]
  - Peripheral swelling [Recovering/Resolving]
  - Condition aggravated [Recovering/Resolving]
  - Arthropathy [Recovering/Resolving]
  - Product dose omission issue [Unknown]

NARRATIVE: CASE EVENT DATE: 2020
